FAERS Safety Report 11053969 (Version 19)
Quarter: 2017Q4

REPORT INFORMATION
  Report Type: Report from Study
  Country: CA (occurrence: CA)
  Receive Date: 20150422
  Receipt Date: 20171220
  Transmission Date: 20180320
  Serious: Yes (Hospitalization, Other)
  Sender: FDA-Public Use
  Company Number: CA-ROCHE-1315825

PATIENT
  Age: 71 Year
  Sex: Female

DRUGS (13)
  1. ACTEMRA [Suspect]
     Active Substance: TOCILIZUMAB
     Indication: RHEUMATOID ARTHRITIS
     Dosage: LAST INFUSION WAS ON 14/JAN/2014.
     Route: 042
     Dates: start: 20131105, end: 20140211
  2. AVAPRO [Concomitant]
     Active Substance: IRBESARTAN
     Route: 065
  3. APO-HYDRO [Concomitant]
     Active Substance: HYDROCHLOROTHIAZIDE
     Dosage: OD
     Route: 065
  4. DEXILANT [Concomitant]
     Active Substance: DEXLANSOPRAZOLE
  5. BENADRYL [Suspect]
     Active Substance: DIPHENHYDRAMINE HYDROCHLORIDE
     Indication: PRODUCT USED FOR UNKNOWN INDICATION
     Dosage: LAST DOSE PRIOR TO SAE ON 29/JUN/2015
     Route: 048
     Dates: start: 20150629
  6. HUMIRA [Concomitant]
     Active Substance: ADALIMUMAB
  7. PREDNISONE. [Concomitant]
     Active Substance: PREDNISONE
  8. RESOTRAN [Concomitant]
     Active Substance: PRUCALOPRIDE SUCCINATE
     Dosage: OD
     Route: 065
  9. METHYLPREDNISOLONE. [Concomitant]
     Active Substance: METHYLPREDNISOLONE
     Route: 042
     Dates: start: 20150629
  10. RITUXAN [Suspect]
     Active Substance: RITUXIMAB
     Indication: RHEUMATOID ARTHRITIS
     Dosage: ON 04/MAR/2016, SHE RECEIEVD LAST DOSE OF RITUXIMAB.
     Route: 042
     Dates: start: 20150629
  11. HYDROXYCHLOROQUINE SULFATE. [Concomitant]
     Active Substance: HYDROXYCHLOROQUINE SULFATE
     Route: 065
  12. DIPHENHYDRAMINE HCL [Concomitant]
     Active Substance: DIPHENHYDRAMINE HYDROCHLORIDE
     Route: 048
     Dates: start: 20150629
  13. ACETAMINOPHEN. [Concomitant]
     Active Substance: ACETAMINOPHEN
     Route: 048
     Dates: start: 20150629

REACTIONS (36)
  - Pneumonia [Recovered/Resolved]
  - Candida infection [Recovering/Resolving]
  - Contusion [Recovering/Resolving]
  - Nausea [Recovering/Resolving]
  - Blood pressure increased [Unknown]
  - Infection [Recovered/Resolved]
  - Cholelithiasis [Unknown]
  - Ulcer [Not Recovered/Not Resolved]
  - Drug ineffective [Unknown]
  - Fatigue [Not Recovered/Not Resolved]
  - Rheumatoid arthritis [Not Recovered/Not Resolved]
  - Fatigue [Unknown]
  - Dizziness [Unknown]
  - Arthralgia [Unknown]
  - Pain [Unknown]
  - Asthenia [Recovering/Resolving]
  - Ill-defined disorder [Unknown]
  - Gastrooesophageal reflux disease [Recovering/Resolving]
  - White blood cell count decreased [Recovering/Resolving]
  - Loss of consciousness [Recovering/Resolving]
  - Gastrooesophageal reflux disease [Not Recovered/Not Resolved]
  - Nasopharyngitis [Unknown]
  - Oxygen saturation decreased [Unknown]
  - Fall [Unknown]
  - Hypertension [Unknown]
  - Headache [Recovered/Resolved]
  - Blood iron decreased [Not Recovered/Not Resolved]
  - Bacterial infection [Recovered/Resolved]
  - Joint swelling [Unknown]
  - Malaise [Recovering/Resolving]
  - Moaning [Recovering/Resolving]
  - Abdominal pain upper [Unknown]
  - Oral herpes [Recovering/Resolving]
  - Cardiac murmur [Unknown]
  - Infusion related reaction [Recovered/Resolved]
  - Back injury [Recovering/Resolving]

NARRATIVE: CASE EVENT DATE: 20140114
